FAERS Safety Report 10565165 (Version 3)
Quarter: 2014Q4

REPORT INFORMATION
  Report Type: Spontaneous
  Country: GB (occurrence: None)
  Receive Date: 20141103
  Receipt Date: 20141124
  Transmission Date: 20150529
  Serious: Yes (Other)
  Sender: FDA-Public Use
  Company Number: 2601605

PATIENT
  Age: 32 Year
  Sex: Female
  Weight: 86.4 kg

DRUGS (10)
  1. ANTHRACYCLINES AND RELATED SUBSTANCES [Suspect]
     Active Substance: UNSPECIFIED INGREDIENT
     Indication: ACUTE PROMYELOCYTIC LEUKAEMIA
     Dates: start: 201002
  2. BUSULFAN [Suspect]
     Active Substance: BUSULFAN
     Indication: LEUKAEMIA RECURRENT
     Dates: start: 201212
  3. IDARUBICIN [Suspect]
     Active Substance: IDARUBICIN
     Indication: LEUKAEMIA RECURRENT
     Dates: start: 201002
  4. GEMTUZUMAB OZOGAMICIN [Suspect]
     Active Substance: GEMTUZUMAB OZOGAMICIN
     Indication: LEUKAEMIA RECURRENT
     Dates: start: 201309
  5. MITOXANTRONE HYDROCHLORIDE. [Suspect]
     Active Substance: MITOXANTRONE HYDROCHLORIDE
     Indication: ACUTE PROMYELOCYTIC LEUKAEMIA
     Dates: start: 201002
  6. CYCLOPHOSPHAMIDE. [Suspect]
     Active Substance: CYCLOPHOSPHAMIDE
     Indication: LEUKAEMIA RECURRENT
     Dates: start: 201212
  7. THIOTEPA. [Suspect]
     Active Substance: THIOTEPA
     Indication: LEUKAEMIA RECURRENT
     Dates: start: 201212
  8. ATRA /00614702/ [Suspect]
     Active Substance: ATRACURIUM BESYLATE
     Indication: ACUTE PROMYELOCYTIC LEUKAEMIA
     Dates: start: 201002
  9. IDARUBICIN [Suspect]
     Active Substance: IDARUBICIN
     Indication: ACUTE PROMYELOCYTIC LEUKAEMIA
     Dates: start: 201002
  10. ARSENIC TRIOXIDE [Suspect]
     Active Substance: ARSENIC TRIOXIDE
     Dates: start: 201002

REACTIONS (3)
  - Malaise [None]
  - Leukaemia recurrent [None]
  - Lower respiratory tract infection fungal [None]

NARRATIVE: CASE EVENT DATE: 201309
